FAERS Safety Report 13251750 (Version 1)
Quarter: 2017Q1

REPORT INFORMATION
  Report Type: Spontaneous
  Country: US (occurrence: US)
  Receive Date: 20170220
  Receipt Date: 20170220
  Transmission Date: 20170428
  Serious: No
  Sender: FDA-Public Use
  Company Number: US-PFIZER INC-2017067942

PATIENT
  Sex: Female

DRUGS (1)
  1. FLUCONAZOLE. [Suspect]
     Active Substance: FLUCONAZOLE
     Dosage: 200 MG, UNK

REACTIONS (8)
  - Rash [Unknown]
  - Mouth ulceration [Unknown]
  - Pruritus [Unknown]
  - Lip blister [Unknown]
  - Vulvovaginal pruritus [Unknown]
  - Paraesthesia oral [Unknown]
  - Erythema [Unknown]
  - Lip swelling [Unknown]
